FAERS Safety Report 4470119-8 (Version None)
Quarter: 2004Q3

REPORT INFORMATION
  Report Type: 
  Country: None (occurrence: None)
  Receive Date: 20040910
  Receipt Date: 20040712
  Transmission Date: 20050211
  Serious: No
  Sender: FDA-Public Use
  Company Number: 2004223563US

PATIENT
  Age: 79 Year
  Sex: Female
  Weight: 74.8 kg

DRUGS (1)
  1. BEXTRA [Suspect]
     Dosage: 10 MG, QD
     Dates: start: 20030101

REACTIONS (6)
  - ASTHENIA [None]
  - FATIGUE [None]
  - JOINT STIFFNESS [None]
  - ORAL MUCOSAL BLISTERING [None]
  - OSTEOARTHRITIS [None]
  - PAIN IN EXTREMITY [None]
